FAERS Safety Report 17120410 (Version 1)
Quarter: 2019Q4

REPORT INFORMATION
  Report Type: Spontaneous
  Country: US (occurrence: US)
  Receive Date: 20191206
  Receipt Date: 20191206
  Transmission Date: 20200122
  Serious: Yes (Hospitalization, Other)
  Sender: FDA-Public Use
  Company Number: US-ZYDUS-044210

PATIENT
  Age: 44 Year
  Sex: Female

DRUGS (2)
  1. AZATHIOPRINE. [Suspect]
     Active Substance: AZATHIOPRINE
     Indication: NEUROMYELITIS OPTICA SPECTRUM DISORDER
     Route: 065
  2. METHYLPREDNISOLONE. [Suspect]
     Active Substance: METHYLPREDNISOLONE
     Indication: NEUROMYELITIS OPTICA SPECTRUM DISORDER
     Route: 042

REACTIONS (6)
  - Acute kidney injury [Recovering/Resolving]
  - Proteinuria [Unknown]
  - Scleroderma [Unknown]
  - Raynaud^s phenomenon [Unknown]
  - Hepatotoxicity [Unknown]
  - Malignant hypertension [Recovering/Resolving]
